FAERS Safety Report 4534290-1 (Version None)
Quarter: 2004Q4

REPORT INFORMATION
  Report Type: 
  Country: None (occurrence: None)
  Receive Date: 20041214
  Receipt Date: 20040820
  Transmission Date: 20050328
  Serious: No
  Sender: FDA-Public Use
  Company Number: 2004230846US

PATIENT
  Age: 62 Year
  Sex: Female

DRUGS (1)
  1. BEXTRA [Suspect]
     Dosage: 10 MG, QD, ORAL
     Route: 048
     Dates: start: 20040812, end: 20040814

REACTIONS (4)
  - ABDOMINAL PAIN [None]
  - ASTHENIA [None]
  - FEELING ABNORMAL [None]
  - INSOMNIA [None]
